FAERS Safety Report 5365767-7 (Version None)
Quarter: 2007Q2

REPORT INFORMATION
  Report Type: 
  Country: None (occurrence: None)
  Receive Date: 20070621
  Receipt Date: 20070613
  Transmission Date: 20071010
  Serious: Yes (Hospitalization)
  Sender: FDA-Public Use
  Company Number: US-ABBOTT-07P-163-0357742-00

PATIENT
  Sex: Female

DRUGS (5)
  1. DEPAKOTE [Suspect]
     Indication: DRUG USE FOR UNKNOWN INDICATION
     Dates: end: 20060618
  2. INTERFERON BETA-1A [Suspect]
     Indication: MULTIPLE SCLEROSIS
     Route: 058
     Dates: start: 20060428, end: 20060618
  3. INTERFERON BETA-1A [Suspect]
     Route: 058
     Dates: start: 20070213, end: 20070410
  4. PARACETAMOL [Concomitant]
     Indication: PREMEDICATION
  5. IBUPROFEN [Concomitant]
     Indication: PREMEDICATION

REACTIONS (5)
  - DIABETES MELLITUS [None]
  - FEELING ABNORMAL [None]
  - PANCREATITIS [None]
  - PNEUMONIA [None]
  - RENAL FAILURE [None]
